FAERS Safety Report 5929706-X (Version None)
Quarter: 2008Q4

REPORT INFORMATION
  Report Type: 
  Country: None (occurrence: None)
  Receive Date: 20081021
  Receipt Date: 20081009
  Transmission Date: 20090506
  Serious: Yes (Death, Hospitalization, Other)
  Sender: FDA-Public Use
  Company Number: 2007BI026929

PATIENT
  Age: 59 Year
  Sex: Male
  Weight: 52.6173 kg

DRUGS (3)
  1. AVONEX [Suspect]
     Indication: MULTIPLE SCLEROSIS
     Dosage: 30 UG;QW;IM
     Route: 030
     Dates: start: 20060201
  2. CON MEDS [Concomitant]
  3. PREV MEDS [Concomitant]

REACTIONS (29)
  - ABDOMINAL DISTENSION [None]
  - ABDOMINAL PAIN UPPER [None]
  - ANAEMIA [None]
  - ANXIETY [None]
  - ASTHMA [None]
  - CACHEXIA [None]
  - CATATONIA [None]
  - CONVULSION [None]
  - DECREASED APPETITE [None]
  - DEPRESSION [None]
  - DISEASE COMPLICATION [None]
  - FEELING COLD [None]
  - JUDGEMENT IMPAIRED [None]
  - MOVEMENT DISORDER [None]
  - MULTIPLE ALLERGIES [None]
  - MULTIPLE SCLEROSIS [None]
  - OXYGEN SATURATION DECREASED [None]
  - PAIN [None]
  - PNEUMONIA [None]
  - POST PROCEDURAL URINE LEAK [None]
  - PULMONARY CONGESTION [None]
  - PYREXIA [None]
  - RENAL FAILURE [None]
  - RESTLESSNESS [None]
  - SOMNOLENCE [None]
  - TRANSIENT ISCHAEMIC ATTACK [None]
  - URETHRAL PERFORATION [None]
  - URINARY RETENTION [None]
  - URINARY TRACT INFECTION [None]
